FAERS Safety Report 4693278-0 (Version None)
Quarter: 2005Q2

REPORT INFORMATION
  Report Type: 
  Country: None (occurrence: None)
  Receive Date: 20050617
  Receipt Date: 20050513
  Transmission Date: 20051028
  Serious: Yes (Other)
  Sender: FDA-Public Use
  Company Number: US-GLAXOSMITHKLINE-A0558504A

PATIENT
  Age: 16 Year
  Sex: Female

DRUGS (4)
  1. WELLBUTRIN XL [Suspect]
     Indication: ILL-DEFINED DISORDER
     Dosage: 1800MG PER DAY
     Route: 048
     Dates: start: 20050512, end: 20050512
  2. ALBUTEROL [Concomitant]
  3. ADVAIR [Concomitant]
  4. SINGULAIR [Concomitant]

REACTIONS (3)
  - DRUG ABUSER [None]
  - INTENTIONAL MISUSE [None]
  - SOMNOLENCE [None]
